FAERS Safety Report 10896800 (Version 1)
Quarter: 2015Q1

REPORT INFORMATION
  Report Type: Spontaneous
  Country: US (occurrence: US)
  Receive Date: 20150309
  Receipt Date: 20150309
  Transmission Date: 20150721
  Serious: Yes (Death)
  Sender: FDA-Public Use
  Company Number: US-BANPHARM-20153679

PATIENT
  Age: 28 Year
  Sex: Male

DRUGS (7)
  1. ALPRAZOLAM. [Suspect]
     Active Substance: ALPRAZOLAM
  2. OXYCODONE [Suspect]
     Active Substance: OXYCODONE
  3. CODEINE [Suspect]
     Active Substance: CODEINE
  4. QUININE [Suspect]
     Active Substance: QUININE
  5. DIPHENHYDRAMINE UNKNOWN PRODUCT [Suspect]
     Active Substance: DIPHENHYDRAMINE
  6. HEROIN [Suspect]
     Active Substance: DIACETYLMORPHINE
  7. METHADONE [Suspect]
     Active Substance: METHADONE HYDROCHLORIDE

REACTIONS (2)
  - Drug abuse [Fatal]
  - Exposure via ingestion [None]
